FAERS Safety Report 4373125-7 (Version None)
Quarter: 2004Q2

REPORT INFORMATION
  Report Type: 
  Country: None (occurrence: None)
  Receive Date: 20040608
  Receipt Date: 20040323
  Transmission Date: 20050107
  Serious: Yes (Hospitalization, Other)
  Sender: FDA-Public Use
  Company Number: PHEH2004US03354

PATIENT
  Age: 51 Year
  Sex: Female
  Weight: 100 kg

DRUGS (5)
  1. ZELNORM [Suspect]
     Indication: IRRITABLE BOWEL SYNDROME
     Dosage: 6 MG, BID
     Route: 048
     Dates: start: 20030701, end: 20030701
  2. ZELNORM [Suspect]
     Dosage: 2 MG, BID
     Route: 048
     Dates: start: 20040315, end: 20040323
  3. EFFEXOR XR [Concomitant]
     Indication: DEPRESSION
     Dosage: 75 MG, UNK
     Dates: start: 20031104
  4. ALPRAZOLAM [Concomitant]
     Indication: ANXIETY
     Dates: start: 20030715
  5. TEVETEN [Concomitant]
     Indication: HYPERTENSION
     Dates: start: 20030903

REACTIONS (7)
  - ABDOMINAL DISTENSION [None]
  - ABDOMINAL PAIN [None]
  - ASCITES [None]
  - CHOLECYSTECTOMY [None]
  - CONDITION AGGRAVATED [None]
  - DIZZINESS [None]
  - SWELLING [None]
